FAERS Safety Report 8140305-4 (Version None)
Quarter: 2012Q1

REPORT INFORMATION
  Report Type: 
  Country: None (occurrence: None)
  Receive Date: 20120216
  Receipt Date: 20120209
  Transmission Date: 20120608
  Serious: No
  Sender: FDA-Public Use
  Company Number: US-PFIZER INC-2012037292

PATIENT
  Sex: Female
  Weight: 75.737 kg

DRUGS (8)
  1. ZOLOFT [Interacting]
     Indication: ANXIETY
     Dosage: UNK
     Dates: start: 20110101
  2. NAMENDA [Interacting]
     Indication: DEMENTIA ALZHEIMER'S TYPE
     Dosage: UNK
  3. TOVIAZ [Interacting]
     Indication: INCONTINENCE
     Dosage: 2 MG, DAILY
  4. ASPIRIN [Suspect]
     Dosage: 81 MG, UNK
     Dates: start: 20110101
  5. ARICEPT [Interacting]
     Indication: DEMENTIA ALZHEIMER'S TYPE
     Dosage: UNK
  6. TOVIAZ [Interacting]
     Dosage: 4 MG, DAILY
  7. CARBIDOPA AND LEVODOPA [Interacting]
     Indication: PARKINSON'S DISEASE
     Dosage: UNK
  8. XANAX [Interacting]
     Indication: ANXIETY
     Dosage: UNK, AS NEEDED

REACTIONS (2)
  - CONFUSIONAL STATE [None]
  - DRUG INTERACTION [None]
